FAERS Safety Report 5314642-2 (Version None)
Quarter: 2007Q2

REPORT INFORMATION
  Report Type: 
  Country: None (occurrence: None)
  Receive Date: 20070427
  Receipt Date: 20070420
  Transmission Date: 20071010
  Serious: Yes (Hospitalization, Disabling)
  Sender: FDA-Public Use
  Company Number: TCI2006A03676

PATIENT
  Age: 76 Year
  Sex: Male

DRUGS (3)
  1. ACTOS [Suspect]
     Indication: DIABETES MELLITUS NON-INSULIN-DEPENDENT
     Dosage: 30 MG (30 MG, 1 IN 1 D) PER ORAL
     Route: 048
     Dates: start: 20060301, end: 20060731
  2. ASPIRIN [Concomitant]
  3. AMARYL [Concomitant]

REACTIONS (13)
  - ABDOMINAL DISTENSION [None]
  - BLADDER NEOPLASM [None]
  - CONSTIPATION [None]
  - CYSTITIS NONINFECTIVE [None]
  - DYSPNOEA [None]
  - HAEMODIALYSIS [None]
  - MASS [None]
  - OEDEMA MUCOSAL [None]
  - OEDEMA PERIPHERAL [None]
  - PLEURAL EFFUSION [None]
  - POSTRENAL FAILURE [None]
  - SWELLING FACE [None]
  - URINE OUTPUT INCREASED [None]
